FAERS Safety Report 5709154-8 (Version None)
Quarter: 2008Q2

REPORT INFORMATION
  Report Type: 
  Country: None (occurrence: None)
  Receive Date: 20080418
  Receipt Date: 20080408
  Transmission Date: 20081010
  Serious: Yes (Hospitalization)
  Sender: FDA-Public Use
  Company Number: US-ROCHE-557340

PATIENT
  Age: 18 Year
  Sex: Male
  Weight: 60.8 kg

DRUGS (8)
  1. VALIUM [Suspect]
     Indication: DRUG USE FOR UNKNOWN INDICATION
     Route: 065
  2. XANAX [Suspect]
     Indication: DRUG USE FOR UNKNOWN INDICATION
     Route: 065
  3. OXYCONTIN [Suspect]
     Indication: DRUG USE FOR UNKNOWN INDICATION
     Route: 065
  4. FENTANYL CITRATE [Suspect]
     Indication: DRUG USE FOR UNKNOWN INDICATION
     Route: 065
  5. COCAINE [Suspect]
     Indication: DRUG USE FOR UNKNOWN INDICATION
     Route: 065
  6. ECSTASY [Suspect]
     Indication: DRUG USE FOR UNKNOWN INDICATION
     Route: 065
  7. OPIOID ANALGESIC NOS [Suspect]
     Indication: DRUG USE FOR UNKNOWN INDICATION
     Dosage: DRUG: OPIOIDS
     Route: 065
  8. MARIJUANA [Suspect]
     Indication: DRUG USE FOR UNKNOWN INDICATION
     Route: 065

REACTIONS (3)
  - SUBSTANCE ABUSE [None]
  - SUICIDAL IDEATION [None]
  - SUICIDE ATTEMPT [None]
